FAERS Safety Report 4403712-9 (Version None)
Quarter: 2004Q3

REPORT INFORMATION
  Report Type: 
  Country: None (occurrence: None)
  Receive Date: 20040719
  Receipt Date: 20040706
  Transmission Date: 20050211
  Serious: Yes (Death, Hospitalization)
  Sender: FDA-Public Use
  Company Number: 2004-BP-05339BR

PATIENT
  Age: 76 Year
  Sex: Male

DRUGS (9)
  1. SPIRIVA [Suspect]
     Indication: CHRONIC OBSTRUCTIVE AIRWAYS DISEASE
     Dosage: 18 MCG (18 MCG, 1 KAI OAD) IH
     Route: 055
     Dates: start: 20030801
  2. METICORTEN [Concomitant]
  3. FORASEQ (FORASEQ) [Concomitant]
  4. TEOLONG (THEOPHYLLINE) [Concomitant]
  5. LANOXIN [Concomitant]
  6. CAPOTEN [Concomitant]
  7. AMARYL [Concomitant]
  8. ALDACTONE [Concomitant]
  9. FUROSEMIDE [Concomitant]

REACTIONS (1)
  - CARDIOPULMONARY FAILURE [None]
